FAERS Safety Report 24879052 (Version 2)
Quarter: 2025Q1

REPORT INFORMATION
  Report Type: Report from Study
  Country: US (occurrence: US)
  Receive Date: 20250123
  Receipt Date: 20250311
  Transmission Date: 20250409
  Serious: Yes (Hospitalization, Other)
  Sender: NOVARTIS
  Company Number: US-002147023-NVSC2025US011492

PATIENT
  Sex: Female

DRUGS (1)
  1. KISQALI [Suspect]
     Active Substance: RIBOCICLIB
     Indication: Neoplasm malignant
     Route: 048

REACTIONS (7)
  - Illness [Unknown]
  - Seizure [Unknown]
  - Clonus [Unknown]
  - Diarrhoea [Unknown]
  - Chills [Unknown]
  - Fatigue [Unknown]
  - Cough [Unknown]
